FAERS Safety Report 5661700-9 (Version None)
Quarter: 2008Q1

REPORT INFORMATION
  Report Type: 
  Country: None (occurrence: None)
  Receive Date: 20080312
  Receipt Date: 20080305
  Transmission Date: 20080703
  Serious: Yes (Death, Hospitalization)
  Sender: FDA-Public Use
  Company Number: A0713550A

PATIENT
  Age: 36 Year
  Sex: Male

DRUGS (1)
  1. ZOFRAN [Suspect]
     Indication: DRUG USE FOR UNKNOWN INDICATION
     Dates: start: 20080130

REACTIONS (1)
  - MALIGNANT NEOPLASM PROGRESSION [None]
